FAERS Safety Report 7717678-7 (Version None)
Quarter: 2011Q3

REPORT INFORMATION
  Report Type: 
  Country: None (occurrence: None)
  Receive Date: 20110830
  Receipt Date: 20110830
  Transmission Date: 20111222
  Serious: Yes (Life-Threatening, Other)
  Sender: FDA-Public Use
  Company Number: None

PATIENT
  Sex: Female
  Weight: 62.142 kg

DRUGS (2)
  1. MIRENA [Suspect]
     Indication: CONTRACEPTION
     Route: 015
  2. MIRENA [Suspect]
     Indication: MENORRHAGIA
     Route: 015

REACTIONS (21)
  - MENTAL DISORDER [None]
  - BREAST PAIN [None]
  - DEPRESSION [None]
  - HORMONE LEVEL ABNORMAL [None]
  - HOT FLUSH [None]
  - CONDITION AGGRAVATED [None]
  - EMOTIONAL DISORDER [None]
  - IMPAIRED WORK ABILITY [None]
  - PANIC ATTACK [None]
  - SUICIDAL IDEATION [None]
  - SCAR [None]
  - HAIR GROWTH ABNORMAL [None]
  - BLOOD TESTOSTERONE INCREASED [None]
  - INSOMNIA [None]
  - DYSMENORRHOEA [None]
  - FATIGUE [None]
  - CRYING [None]
  - ACNE [None]
  - PELVIC PAIN [None]
  - ANXIETY [None]
  - IRRITABILITY [None]
